FAERS Safety Report 9361715 (Version 1)
Quarter: 2013Q2

REPORT INFORMATION
  Report Type: Spontaneous
  Country: US (occurrence: US)
  Receive Date: 20130621
  Receipt Date: 20130621
  Transmission Date: 20140414
  Serious: No
  Sender: FDA-Public Use
  Company Number: US-PFIZER INC-2013186733

PATIENT
  Age: 31 Year
  Sex: Female
  Weight: 90.7 kg

DRUGS (14)
  1. LYRICA [Suspect]
     Indication: FIBROMYALGIA
     Dosage: 50MG IN MORNING AND 100MG IN NIGHT
     Route: 048
     Dates: start: 201304, end: 2013
  2. LYRICA [Suspect]
     Dosage: 100 MG, 3X/DAY
     Route: 048
     Dates: start: 2013
  3. TOPAMAX [Concomitant]
     Dosage: 50 MG, 2X/DAY
  4. PEPCID [Concomitant]
     Indication: GASTROOESOPHAGEAL REFLUX DISEASE
     Dosage: 20 MG, 2X/DAY
  5. LISINOPRIL [Concomitant]
     Dosage: 20 MG, 1X/DAY
  6. DEPAKOTE [Concomitant]
     Dosage: 500 MG, 1X/DAY
  7. SINGULAIR [Concomitant]
     Dosage: 10 MG, 1X/DAY
  8. BACLOFEN [Concomitant]
     Dosage: 20 MG, 3X/DAY
  9. ZOLOFT [Concomitant]
     Dosage: 100 MG, 1X/DAY
  10. TECFIDERA [Concomitant]
     Dosage: 240 MG, 2X/DAY
  11. IMITREX [Concomitant]
     Indication: MIGRAINE
     Dosage: 100 MG, AS NEEDED
  12. MAXALT [Concomitant]
     Indication: MIGRAINE
     Dosage: 10 MG, AS NEEDED
  13. OCELLA [Concomitant]
     Indication: CONTRACEPTION
     Dosage: 3/0.03 MG, UNK
  14. PERCOCET [Concomitant]
     Indication: PAIN
     Dosage: 650/10 MG, UNK

REACTIONS (2)
  - Drug ineffective [Unknown]
  - Fibromyalgia [Unknown]
